FAERS Safety Report 5697714-2 (Version None)
Quarter: 2008Q2

REPORT INFORMATION
  Report Type: 
  Country: None (occurrence: None)
  Receive Date: 20080408
  Receipt Date: 20080407
  Transmission Date: 20081010
  Serious: Yes (Hospitalization)
  Sender: FDA-Public Use
  Company Number: B0509761A

PATIENT
  Age: 60 Year
  Sex: Male

DRUGS (3)
  1. SAWACILLIN [Suspect]
     Dosage: 1500MG PER DAY
     Route: 048
     Dates: start: 20080214, end: 20080216
  2. OMEPRAL [Suspect]
     Dosage: 40MG PER DAY
     Route: 048
     Dates: start: 20080214, end: 20080216
  3. FLAGYL [Suspect]
     Dosage: 500MG PER DAY
     Route: 048
     Dates: start: 20080214, end: 20080216

REACTIONS (1)
  - SUDDEN HEARING LOSS [None]
